FAERS Safety Report 5233970-2 (Version None)
Quarter: 2007Q1

REPORT INFORMATION
  Report Type: 
  Country: None (occurrence: None)
  Receive Date: 20070208
  Receipt Date: 20070202
  Transmission Date: 20070707
  Serious: Yes (Hospitalization)
  Sender: FDA-Public Use
  Company Number: JP-PFIZER INC-2006154010

PATIENT
  Sex: Male
  Weight: 65 kg

DRUGS (4)
  1. ATARAX [Suspect]
     Indication: GASTROENTERITIS
     Route: 048
     Dates: start: 20061121, end: 20061126
  2. MUCOSTA [Suspect]
     Indication: GASTROENTERITIS
     Dosage: TEXT:1 TAB; 3 TAB-FREQ:FREQUENCY: TID
     Route: 048
     Dates: start: 20061121, end: 20061126
  3. GASTER [Suspect]
     Indication: GASTROENTERITIS
     Dosage: TEXT:1 TAB; 1 TAB-FREQ:FREQUENCY: QD
     Route: 048
     Dates: start: 20061121, end: 20061126
  4. DOMPERIDONE [Suspect]
     Indication: GASTROENTERITIS
     Dosage: TEXT:3 TAB; 1 TAB-FREQ:FREQUENCY: TID
     Route: 048
     Dates: start: 20061121, end: 20061126

REACTIONS (2)
  - HEPATIC FUNCTION ABNORMAL [None]
  - JAUNDICE [None]
